FAERS Safety Report 24416362 (Version 1)
Quarter: 2024Q4

REPORT INFORMATION
  Report Type: Spontaneous
  Country: ES (occurrence: ES)
  Receive Date: 20241009
  Receipt Date: 20241009
  Transmission Date: 20250114
  Serious: Yes (Other)
  Sender: PFIZER
  Company Number: ES-PFIZER INC-PV202400129770

PATIENT
  Sex: Female

DRUGS (1)
  1. TAFAMIDIS MEGLUMINE [Suspect]
     Active Substance: TAFAMIDIS MEGLUMINE
     Indication: Cardiac amyloidosis

REACTIONS (3)
  - Polyneuropathy [Unknown]
  - Cardiac amyloidosis [Unknown]
  - Disease progression [Unknown]
